FAERS Safety Report 4524805-1 (Version None)
Quarter: 2004Q4

REPORT INFORMATION
  Report Type: 
  Country: None (occurrence: None)
  Receive Date: 20041213
  Receipt Date: 20040818
  Transmission Date: 20050328
  Serious: Yes (Other)
  Sender: FDA-Public Use
  Company Number: PHBS2004BR10918

PATIENT
  Age: 42 Year
  Sex: Male
  Weight: 52 kg

DRUGS (5)
  1. AMPLICTIL [Concomitant]
     Dosage: 100 MG, ONCE/SINGLE
     Route: 048
     Dates: start: 20040816, end: 20040816
  2. MELLARIL [Suspect]
     Indication: INSOMNIA
     Dosage: 100 MG, ONCE/SINGLE
     Route: 048
     Dates: start: 20040816, end: 20040816
  3. MELLARIL [Suspect]
     Dosage: 25 MG, QD
  4. CELEBREX [Concomitant]
     Route: 065
  5. BENERVA [Concomitant]
     Route: 065

REACTIONS (4)
  - FALL [None]
  - MALAISE [None]
  - SOMNOLENCE [None]
  - SYNCOPE [None]
